FAERS Safety Report 6890789-4 (Version None)
Quarter: 2010Q3

REPORT INFORMATION
  Report Type: 
  Country: None (occurrence: None)
  Receive Date: 20100731
  Receipt Date: 20090319
  Transmission Date: 20110219
  Serious: No
  Sender: FDA-Public Use
  Company Number: US-PFIZER INC-2008156527

PATIENT
  Sex: Female
  Weight: 62.595 kg

DRUGS (2)
  1. LIPITOR [Suspect]
     Dates: start: 20080701, end: 20081101
  2. ANTITHYROID PREPARATIONS [Concomitant]

REACTIONS (1)
  - MUSCLE SPASMS [None]
